FAERS Safety Report 9269413 (Version 1)
Quarter: 2013Q2

REPORT INFORMATION
  Report Type: Spontaneous
  Country: US (occurrence: US)
  Receive Date: 20130503
  Receipt Date: 20130503
  Transmission Date: 20140414
  Serious: Yes (Other)
  Sender: FDA-Public Use
  Company Number: US-BAYER-2013-052308

PATIENT
  Age: 17 Year
  Sex: Female
  Weight: 58.96 kg

DRUGS (5)
  1. YASMIN [Suspect]
  2. OCELLA [Suspect]
  3. AMOXICILLIN [Concomitant]
     Dosage: 500 MG, UNK
     Dates: start: 20090216
  4. PROMETHAZINE [Concomitant]
     Dosage: 25 MG, UNK
     Dates: start: 20090305
  5. NITROFURANTOIN [Concomitant]
     Dosage: UNK
     Dates: start: 20090306

REACTIONS (1)
  - Thrombophlebitis [None]
